FAERS Safety Report 7513506-3 (Version None)
Quarter: 2011Q2

REPORT INFORMATION
  Report Type: 
  Country: None (occurrence: None)
  Receive Date: 20110531
  Receipt Date: 20110517
  Transmission Date: 20111010
  Serious: Yes (Other)
  Sender: FDA-Public Use
  Company Number: NL-MYLANLABS-2011S1010325

PATIENT
  Age: 48 Year
  Sex: Male
  Weight: 143 kg

DRUGS (1)
  1. METFORMIN HCL [Suspect]
     Indication: DIABETES MELLITUS
     Dosage: 3X500 MG
     Route: 048
     Dates: start: 20060316

REACTIONS (1)
  - ERECTILE DYSFUNCTION [None]
